FAERS Safety Report 24402149 (Version 1)
Quarter: 2024Q4

REPORT INFORMATION
  Report Type: Report from Study
  Country: US (occurrence: US)
  Receive Date: 20241007
  Receipt Date: 20241007
  Transmission Date: 20250115
  Serious: Yes (Life-Threatening, Hospitalization)
  Sender: EMD SERONO INC
  Company Number: US-Merck Healthcare KGaA-2024031582

PATIENT
  Sex: Female

DRUGS (1)
  1. REBIF [Suspect]
     Active Substance: INTERFERON BETA-1A
     Indication: Multiple sclerosis
     Route: 058
     Dates: start: 20090116

REACTIONS (3)
  - Cardiac arrest [Unknown]
  - Rib fracture [Unknown]
  - Heart rate increased [Unknown]
